FAERS Safety Report 10564809 (Version 1)
Quarter: 2014Q4

REPORT INFORMATION
  Report Type: Report from Study
  Country: US (occurrence: US)
  Receive Date: 20141105
  Receipt Date: 20141105
  Transmission Date: 20150529
  Serious: Yes (Hospitalization, Other)
  Sender: FDA-Public Use
  Company Number: US-AMGEN-USASL2014084475

PATIENT
  Age: 74 Year
  Sex: Female

DRUGS (2)
  1. METHOTREXATE [Concomitant]
     Active Substance: METHOTREXATE
     Dosage: UNK
  2. ENBREL [Suspect]
     Active Substance: ETANERCEPT
     Indication: RHEUMATOID ARTHRITIS
     Dosage: UNK UNK, QWK
     Route: 065

REACTIONS (15)
  - Fall [Recovered/Resolved]
  - Fibromyalgia [Not Recovered/Not Resolved]
  - Pelvic fracture [Recovered/Resolved]
  - Osteoporosis [Not Recovered/Not Resolved]
  - Weight decreased [Recovered/Resolved]
  - Vitamin D deficiency [Recovered/Resolved]
  - Deformity [Not Recovered/Not Resolved]
  - Gait disturbance [Not Recovered/Not Resolved]
  - Transfusion [Recovered/Resolved]
  - Hyponatraemia [Recovered/Resolved]
  - Pain [Not Recovered/Not Resolved]
  - Seizure [Recovered/Resolved]
  - Malaise [Recovered/Resolved]
  - Hypovitaminosis [Recovered/Resolved]
  - Mobility decreased [Not Recovered/Not Resolved]
